FAERS Safety Report 5053757-3 (Version None)
Quarter: 2006Q3

REPORT INFORMATION
  Report Type: 
  Country: None (occurrence: None)
  Receive Date: 20060718
  Receipt Date: 20060705
  Transmission Date: 20061208
  Serious: Yes (Hospitalization)
  Sender: FDA-Public Use
  Company Number: 2006AP03168

PATIENT
  Age: 28708 Day
  Sex: Male

DRUGS (3)
  1. CASODEX [Suspect]
     Indication: PROSTATE CANCER
     Route: 048
     Dates: start: 20060308, end: 20060617
  2. LEUPLIN [Concomitant]
     Route: 058
     Dates: start: 20060324
  3. ESTROGENIC SUBSTANCE [Concomitant]
     Dosage: LARGE VOLUME
     Dates: start: 20060201

REACTIONS (3)
  - CHOLELITHIASIS [None]
  - EXOCRINE PANCREATIC FUNCTION TEST ABNORMAL [None]
  - HEPATIC FUNCTION ABNORMAL [None]
